FAERS Safety Report 7477149-2 (Version None)
Quarter: 2011Q2

REPORT INFORMATION
  Report Type: 
  Country: None (occurrence: None)
  Receive Date: 20110512
  Receipt Date: 20110429
  Transmission Date: 20111010
  Serious: Yes (Death)
  Sender: FDA-Public Use
  Company Number: IT-MYLANLABS-2011S1009059

PATIENT
  Age: 73 Year
  Sex: Male

DRUGS (6)
  1. LAMIVUDINE [Concomitant]
     Indication: PROPHYLAXIS
     Route: 065
  2. ETOPOSIDE [Suspect]
     Indication: LYMPHOMA
     Route: 065
     Dates: end: 20070301
  3. MESNA [Suspect]
     Indication: LYMPHOMA
     Route: 065
     Dates: end: 20070301
  4. RITUXAN [Suspect]
     Indication: LYMPHOMA
     Route: 065
     Dates: end: 20070301
  5. IFOSFAMIDE [Suspect]
     Indication: LYMPHOMA
     Route: 065
     Dates: end: 20070301
  6. MITOXANTRONE [Suspect]
     Indication: LYMPHOMA
     Route: 065
     Dates: end: 20070301

REACTIONS (1)
  - HEPATITIS B [None]
